FAERS Safety Report 6530714-9 (Version None)
Quarter: 2010Q1

REPORT INFORMATION
  Report Type: 
  Country: None (occurrence: None)
  Receive Date: 20100108
  Receipt Date: 20081208
  Transmission Date: 20100710
  Serious: No
  Sender: FDA-Public Use
  Company Number: A0759623A

PATIENT
  Age: 64 Year
  Sex: Male

DRUGS (3)
  1. LOVAZA [Suspect]
     Dosage: 1G PER DAY
     Route: 048
     Dates: start: 20080101, end: 20080101
  2. CELEBREX [Concomitant]
  3. MULTIPLE MEDICATIONS [Concomitant]

REACTIONS (1)
  - GASTROINTESTINAL PAIN [None]
